FAERS Safety Report 5365323-0 (Version None)
Quarter: 2007Q2

REPORT INFORMATION
  Report Type: 
  Country: None (occurrence: None)
  Receive Date: 20070530
  Receipt Date: 20070214
  Transmission Date: 20071010
  Serious: No
  Sender: FDA-Public Use
  Company Number: 2006PV022588

PATIENT
  Age: 66 Year
  Sex: Female
  Weight: 87.5442 kg

DRUGS (9)
  1. BYETTA [Suspect]
     Indication: DIABETES MELLITUS NON-INSULIN-DEPENDENT
     Dosage: 10 MCG;BID;SC ; 5 MCG;BID;SC ; 10 MCG;BID;SC ; 5 MCG;BID;SC ; 10 MCG;BID;SC; 5 MCG;BID;SC
     Route: 058
     Dates: start: 20060601, end: 20060701
  2. BYETTA [Suspect]
     Indication: DIABETES MELLITUS NON-INSULIN-DEPENDENT
     Dosage: 10 MCG;BID;SC ; 5 MCG;BID;SC ; 10 MCG;BID;SC ; 5 MCG;BID;SC ; 10 MCG;BID;SC; 5 MCG;BID;SC
     Route: 058
     Dates: start: 20060701, end: 20060801
  3. BYETTA [Suspect]
     Indication: DIABETES MELLITUS NON-INSULIN-DEPENDENT
     Dosage: 10 MCG;BID;SC ; 5 MCG;BID;SC ; 10 MCG;BID;SC ; 5 MCG;BID;SC ; 10 MCG;BID;SC; 5 MCG;BID;SC
     Route: 058
     Dates: start: 20060901, end: 20061001
  4. BYETTA [Suspect]
     Indication: DIABETES MELLITUS NON-INSULIN-DEPENDENT
     Dosage: 10 MCG;BID;SC ; 5 MCG;BID;SC ; 10 MCG;BID;SC ; 5 MCG;BID;SC ; 10 MCG;BID;SC; 5 MCG;BID;SC
     Route: 058
     Dates: start: 20060801, end: 20070101
  5. BYETTA [Suspect]
     Indication: DIABETES MELLITUS NON-INSULIN-DEPENDENT
     Dosage: 10 MCG;BID;SC ; 5 MCG;BID;SC ; 10 MCG;BID;SC ; 5 MCG;BID;SC ; 10 MCG;BID;SC; 5 MCG;BID;SC
     Route: 058
     Dates: start: 20061002
  6. BYETTA [Suspect]
     Indication: DIABETES MELLITUS NON-INSULIN-DEPENDENT
     Dosage: 10 MCG;BID;SC ; 5 MCG;BID;SC ; 10 MCG;BID;SC ; 5 MCG;BID;SC ; 10 MCG;BID;SC; 5 MCG;BID;SC
     Route: 058
     Dates: start: 20070101
  7. GLUCOPHAGE [Concomitant]
  8. GLIMEPIRIDE [Concomitant]
  9. PROTONIX [Concomitant]

REACTIONS (3)
  - BLOOD GLUCOSE INCREASED [None]
  - NAUSEA [None]
  - WEIGHT DECREASED [None]
